FAERS Safety Report 7371310-3 (Version None)
Quarter: 2011Q1

REPORT INFORMATION
  Report Type: 
  Country: None (occurrence: None)
  Receive Date: 20110324
  Receipt Date: 20110315
  Transmission Date: 20110831
  Serious: Yes (Hospitalization)
  Sender: FDA-Public Use
  Company Number: GB-JNJFOC-20110302628

PATIENT
  Age: 70 Year
  Sex: Male
  Weight: 57.7 kg

DRUGS (3)
  1. BORTEZOMIB [Suspect]
     Indication: MULTIPLE MYELOMA
     Route: 040
  2. DOXORUBICIN [Suspect]
     Indication: MULTIPLE MYELOMA
     Route: 042
  3. DOXORUBICIN [Suspect]
     Route: 042

REACTIONS (1)
  - ATRIAL FIBRILLATION [None]
